FAERS Safety Report 6331281-5 (Version None)
Quarter: 2009Q3

REPORT INFORMATION
  Report Type: 
  Country: None (occurrence: None)
  Receive Date: 20090827
  Receipt Date: 20090821
  Transmission Date: 20100115
  Serious: Yes (Death, Life-Threatening, Hospitalization, Other)
  Sender: FDA-Public Use
  Company Number: BR-ELI_LILLY_AND_COMPANY-BR200812005188

PATIENT
  Sex: Female
  Weight: 60 kg

DRUGS (2)
  1. ALIMTA [Suspect]
     Indication: BRONCHIAL NEOPLASM
     Dosage: 810 MG, MONTHLY (1/M)
     Route: 065
     Dates: end: 20081202
  2. FLUCONAZOLE [Concomitant]
     Dosage: UNK, DAILY (1/D)
     Route: 042
     Dates: start: 20081212, end: 20081219

REACTIONS (7)
  - GASTROINTESTINAL HAEMORRHAGE [None]
  - HYPOVOLAEMIC SHOCK [None]
  - RENAL IMPAIRMENT [None]
  - SHOCK [None]
  - SHOCK HAEMORRHAGIC [None]
  - SKIN REACTION [None]
  - THROMBOCYTOPENIA [None]
